FAERS Safety Report 9099966 (Version 1)
Quarter: 2013Q1

REPORT INFORMATION
  Report Type: Spontaneous
  Country: RU (occurrence: RU)
  Receive Date: 20130214
  Receipt Date: 20130214
  Transmission Date: 20140127
  Serious: Yes (Other)
  Sender: FDA-Public Use
  Company Number: RU-ROCHE-1189938

PATIENT
  Age: 58 Year
  Sex: Female
  Weight: 50 kg

DRUGS (3)
  1. AVASTIN [Suspect]
     Indication: RECTAL CANCER
     Dosage: DOSE REDUCED
     Route: 042
  2. AVASTIN [Suspect]
     Route: 042
     Dates: end: 201209
  3. XELODA [Suspect]
     Indication: RECTAL CANCER
     Route: 048

REACTIONS (5)
  - Asthenia [Recovering/Resolving]
  - Epistaxis [Recovering/Resolving]
  - Gingival bleeding [Recovering/Resolving]
  - Vaginal discharge [Recovering/Resolving]
  - Skin toxicity [Unknown]
